FAERS Safety Report 18604423 (Version 1)
Quarter: 2020Q4

REPORT INFORMATION
  Report Type: Spontaneous
  Country: JP (occurrence: JP)
  Receive Date: 20201211
  Receipt Date: 20201211
  Transmission Date: 20210114
  Serious: Yes (Other)
  Sender: FDA-Public Use
  Company Number: JP-ASTELLAS-2020JP019400

PATIENT
  Age: 9 Decade
  Sex: Female

DRUGS (2)
  1. BETANIS [Suspect]
     Active Substance: MIRABEGRON
     Route: 048
  2. BETANIS [Suspect]
     Active Substance: MIRABEGRON
     Indication: PRODUCT USED FOR UNKNOWN INDICATION
     Dosage: UNK UNK, UNKNOWN FREQ.
     Route: 048

REACTIONS (3)
  - Pollakiuria [Unknown]
  - Arrhythmia [Unknown]
  - Dysuria [Unknown]
